FAERS Safety Report 24381331 (Version 1)
Quarter: 2024Q4

REPORT INFORMATION
  Report Type: Spontaneous
  Country: FR (occurrence: FR)
  Receive Date: 20241001
  Receipt Date: 20241001
  Transmission Date: 20250114
  Serious: Yes (Hospitalization)
  Sender: RANBAXY
  Company Number: FR-AFSSAPS-AM2024000595

PATIENT
  Age: 43 Year
  Sex: Male
  Weight: 110 kg

DRUGS (5)
  1. ACETAMINOPHEN [Suspect]
     Active Substance: ACETAMINOPHEN
     Indication: Headache
     Dosage: 1 GRAM, DAILY
     Route: 048
     Dates: end: 20230510
  2. CODEINE [Suspect]
     Active Substance: CODEINE
     Indication: Headache
     Dosage: PARACETAMOL
     Route: 048
     Dates: end: 20230510
  3. DIHYDROCODEINE BITARTRATE [Suspect]
     Active Substance: DIHYDROCODEINE BITARTRATE
     Indication: Headache
     Dosage: 1 DOSAGE FORM, DAILY
     Route: 048
     Dates: end: 20230510
  4. PREDNISONE [Concomitant]
     Active Substance: PREDNISONE
     Indication: Product used for unknown indication
     Dosage: UNK
     Route: 065
  5. HYDROXYCHLOROQUINE [Concomitant]
     Active Substance: HYDROXYCHLOROQUINE
     Indication: Product used for unknown indication
     Dosage: UNK
     Route: 065

REACTIONS (1)
  - Medication overuse headache [Recovering/Resolving]

NARRATIVE: CASE EVENT DATE: 20230419
